FAERS Safety Report 7396063-4 (Version None)
Quarter: 2011Q2

REPORT INFORMATION
  Report Type: 
  Country: None (occurrence: None)
  Receive Date: 20110406
  Receipt Date: 20110329
  Transmission Date: 20111010
  Serious: Yes (Hospitalization)
  Sender: FDA-Public Use
  Company Number: US-US-EMD SERONO, INC.-7008899

PATIENT
  Sex: Female
  Weight: 68 kg

DRUGS (4)
  1. REBIF [Suspect]
     Indication: MULTIPLE SCLEROSIS
     Route: 058
     Dates: start: 20031020
  2. LIPITOR [Concomitant]
     Indication: PROPHYLAXIS
  3. AMBIEN [Concomitant]
     Indication: SLEEP DISORDER
  4. UNSPECIFIED THYROID MEDICATION [Concomitant]
     Indication: HYPOTHYROIDISM
     Dates: start: 20110201

REACTIONS (9)
  - BLADDER CANCER STAGE IV [None]
  - URETERIC CANCER [None]
  - HYPOVITAMINOSIS [None]
  - INSOMNIA [None]
  - RENAL CANCER [None]
  - URINARY TRACT OBSTRUCTION [None]
  - MUSCLE SPASMS [None]
  - ANAEMIA [None]
  - WEIGHT DECREASED [None]
